FAERS Safety Report 15222274 (Version 1)
Quarter: 2018Q4

REPORT INFORMATION
  Report Type: Report from Study
  Country: ES (occurrence: ES)
  Receive Date: 20180731
  Receipt Date: 20180731
  Transmission Date: 20190204
  Serious: Yes (Life-Threatening, Hospitalization)
  Sender: FDA-Public Use
  Company Number: ES-TEVA-2018-ES-860131

PATIENT
  Age: 67 Year
  Sex: Male

DRUGS (4)
  1. CETIRIZINE (2364A) [Suspect]
     Active Substance: CETIRIZINE HYDROCHLORIDE
     Indication: DEPRESSION
     Dosage: 75 MILLIGRAMS
     Route: 048
     Dates: start: 201106
  2. VENLAFAXINA [Suspect]
     Active Substance: VENLAFAXINE HYDROCHLORIDE
     Indication: DEPRESSION
     Route: 048
     Dates: start: 201106
  3. NEURONTIN 400 MG CAPSULES HARD, 30 CAPSULES [Concomitant]
     Indication: PRODUCT USED FOR UNKNOWN INDICATION
     Dosage: 1200 MILLIGRAM DAILY;
     Route: 048
     Dates: start: 2010, end: 20160703
  4. ALDOCUMAR 1 MG TABLETS, 40 TABLETS [Interacting]
     Active Substance: WARFARIN SODIUM
     Indication: CEREBRAL VENOUS THROMBOSIS
     Route: 048
     Dates: start: 201508, end: 20160703

REACTIONS (2)
  - Subarachnoid haemorrhage [Recovered/Resolved]
  - Drug interaction [Unknown]

NARRATIVE: CASE EVENT DATE: 20160702
